FAERS Safety Report 21110441 (Version 2)
Quarter: 2022Q3

REPORT INFORMATION
  Report Type: Report from Study
  Country: DE (occurrence: DE)
  Receive Date: 20220721
  Receipt Date: 20220815
  Transmission Date: 20221027
  Serious: Yes (Hospitalization, Other)
  Sender: FDA-Public Use
  Company Number: DE-NOVARTISPH-NVSC2022DE120787

PATIENT
  Age: 75 Year
  Sex: Male
  Weight: 94 kg

DRUGS (9)
  1. COSENTYX [Suspect]
     Active Substance: SECUKINUMAB
     Indication: Psoriatic arthropathy
     Dosage: 150 MG, QMO
     Route: 058
     Dates: start: 20160727
  2. ATORVASTATIN [Concomitant]
     Active Substance: ATORVASTATIN
     Indication: Product used for unknown indication
     Dosage: 2 DOSAGE FORM, QHS
     Route: 065
  3. ALLOPURINOL [Concomitant]
     Active Substance: ALLOPURINOL
     Indication: Product used for unknown indication
     Dosage: UNK UNK, QD
     Route: 065
  4. LEVOTHYROXINE [Concomitant]
     Active Substance: LEVOTHYROXINE
     Indication: Product used for unknown indication
     Dosage: 5 DOSAGE FORM, QD
     Route: 065
  5. METFORMIN [Concomitant]
     Active Substance: METFORMIN HYDROCHLORIDE
     Indication: Product used for unknown indication
     Dosage: 2 DOSAGE FORM, BID
     Route: 065
  6. RIVAROXABAN [Concomitant]
     Active Substance: RIVAROXABAN
     Indication: Product used for unknown indication
     Dosage: 1 DOSAGE FORM, QD
     Route: 065
  7. METHOTREXATE SODIUM [Concomitant]
     Active Substance: METHOTREXATE SODIUM
     Indication: Product used for unknown indication
     Dosage: 1 DOSAGE FORM, QW (WEDNESDAY)
     Route: 058
  8. VIMPAT [Concomitant]
     Active Substance: LACOSAMIDE
     Indication: Product used for unknown indication
     Dosage: 1 DOSAGE FORM, QD
     Route: 065
  9. RAMIPRIL [Concomitant]
     Active Substance: RAMIPRIL
     Indication: Product used for unknown indication
     Dosage: UNK, QD
     Route: 065

REACTIONS (30)
  - Syncope [Recovered/Resolved]
  - Epilepsy [Unknown]
  - Partial seizures [Unknown]
  - Aphasia [Unknown]
  - Cognitive disorder [Unknown]
  - Vascular encephalopathy [Unknown]
  - Chronic kidney disease [Unknown]
  - Type 2 diabetes mellitus [Unknown]
  - Hypertension [Unknown]
  - Hyponatraemia [Unknown]
  - Cardiac failure [Unknown]
  - Sleep apnoea syndrome [Unknown]
  - Obesity [Unknown]
  - Cardiac failure chronic [Unknown]
  - Sinus bradycardia [Unknown]
  - Tachyarrhythmia [Unknown]
  - Respiratory failure [Unknown]
  - Generalised tonic-clonic seizure [Unknown]
  - Depressed mood [Unknown]
  - Terminal insomnia [Unknown]
  - Amnesia [Unknown]
  - Speech disorder [Unknown]
  - Glycosylated haemoglobin increased [Unknown]
  - Blood sodium decreased [Unknown]
  - LDL/HDL ratio decreased [Unknown]
  - Blood creatinine decreased [Unknown]
  - Blood cholesterol decreased [Unknown]
  - Myoglobin blood increased [Unknown]
  - Troponin T increased [Unknown]
  - Blood thyroid stimulating hormone increased [Unknown]

NARRATIVE: CASE EVENT DATE: 20220401
